FAERS Safety Report 5725144-3 (Version None)
Quarter: 2008Q2

REPORT INFORMATION
  Report Type: 
  Country: None (occurrence: None)
  Receive Date: 20080501
  Receipt Date: 20080328
  Transmission Date: 20081010
  Serious: Yes (Other)
  Sender: FDA-Public Use
  Company Number: US-MERCK-0803USA05038

PATIENT
  Age: 16 Year
  Sex: Female

DRUGS (5)
  1. SINGULAIR [Suspect]
     Route: 048
     Dates: start: 20060403, end: 20060505
  2. SINGULAIR [Suspect]
     Route: 048
     Dates: start: 20061101, end: 20080328
  3. ZYRTEC [Concomitant]
     Route: 065
  4. IBUPROFEN [Concomitant]
     Route: 065
  5. FLONASE [Concomitant]
     Route: 065

REACTIONS (2)
  - DEPRESSION [None]
  - INTENTIONAL SELF-INJURY [None]
